FAERS Safety Report 13884818 (Version 2)
Quarter: 2017Q3

REPORT INFORMATION
  Report Type: Spontaneous
  Country: CH (occurrence: CH)
  Receive Date: 20170821
  Receipt Date: 20170828
  Transmission Date: 20171127
  Serious: Yes (Death, Hospitalization)
  Sender: FDA-Public Use
  Company Number: CH-NAPPMUNDI-GBR-2017-0048072

PATIENT
  Age: 54 Year
  Sex: Male
  Weight: 65 kg

DRUGS (15)
  1. REMERON [Suspect]
     Active Substance: MIRTAZAPINE
     Indication: PRODUCT USED FOR UNKNOWN INDICATION
     Route: 065
  2. BECOZYM                            /00228301/ [Concomitant]
     Active Substance: CALCIUM PANTOTHENATE\NIACINAMIDE\PYRIDOXINE HYDROCHLORIDE\RIBOFLAVIN\THIAMINE MONONITRATE
     Dosage: UNK, TID (1-1-1-0)
     Route: 048
  3. EFFORTIL [Concomitant]
     Active Substance: ETILEFRINE HYDROCHLORIDE
     Dosage: 20 DROP, DAILY (20-0-0-0)
     Route: 048
  4. ARIXTRA [Suspect]
     Active Substance: FONDAPARINUX SODIUM
     Indication: PULMONARY EMBOLISM
     Dosage: 7.5 MG, DAILY (0-0-1-0)
     Route: 058
     Dates: start: 20170320, end: 20170322
  5. AUGMENTIN [Concomitant]
     Active Substance: AMOXICILLIN\CLAVULANATE POTASSIUM
     Dosage: 3 AMPULE, DAILY
  6. VI-DE 3 [Concomitant]
     Active Substance: CHOLECALCIFEROL
     Dosage: 10 DROP, DAILY (10-0-0-0)
     Route: 048
  7. PANTOZOL [Concomitant]
     Active Substance: PANTOPRAZOLE SODIUM
     Dosage: 40 MG, BID (1-0-1-0)
  8. CALCIMAGON-D3 [Concomitant]
     Active Substance: CALCIUM\CHOLECALCIFEROL
     Dosage: UNK, BID (1-0-1-0)
  9. ELTROXIN LF [Concomitant]
     Dosage: 2.5 TABLET, DAILY (2.5-0-0-0)
  10. KEPPRA [Concomitant]
     Active Substance: LEVETIRACETAM
     Dosage: 2 TABLET, BID (2-0-2-0)
     Route: 048
  11. MST CONTINUS [Suspect]
     Active Substance: MORPHINE SULFATE
     Indication: PRODUCT USED FOR UNKNOWN INDICATION
     Dosage: 30 MG, BID (1-0-1-0), [30MG STRENGTH]
     Route: 048
  12. SEROQUEL [Suspect]
     Active Substance: QUETIAPINE FUMARATE
     Indication: PRODUCT USED FOR UNKNOWN INDICATION
     Route: 065
  13. LYRICA [Concomitant]
     Active Substance: PREGABALIN
     Dosage: 25 MG, DAILY (1-0-0-0)
     Route: 048
  14. BENERVA [Concomitant]
     Active Substance: THIAMINE
     Dosage: 1-0-0-0
     Route: 048
  15. QUETIAPINE. [Concomitant]
     Active Substance: QUETIAPINE

REACTIONS (5)
  - Hypoxia [Fatal]
  - Multiple organ dysfunction syndrome [Fatal]
  - Subdural haematoma [Recovered/Resolved]
  - Respiratory failure [Fatal]
  - Cardiac arrest [Recovered/Resolved]

NARRATIVE: CASE EVENT DATE: 20170322
